FAERS Safety Report 7702892-7 (Version None)
Quarter: 2011Q3

REPORT INFORMATION
  Report Type: 
  Country: None (occurrence: None)
  Receive Date: 20110823
  Receipt Date: 20110812
  Transmission Date: 20111222
  Serious: Yes (Hospitalization, Other)
  Sender: FDA-Public Use
  Company Number: US-BAYER-2011-020054

PATIENT
  Age: 22 Year
  Sex: Female
  Weight: 79.819 kg

DRUGS (10)
  1. YASMIN [Suspect]
     Indication: CONTRACEPTION
     Dosage: UNK
     Route: 048
     Dates: start: 20040401, end: 20080701
  2. IBUPROFEN [Concomitant]
     Dosage: UNK
     Dates: start: 20021101, end: 20080201
  3. PRILOSEC [Concomitant]
     Dosage: 20 MG, QD
     Route: 048
  4. EFFEXOR XR [Concomitant]
     Indication: DEPRESSION
     Dosage: 37.5 MG, QD
     Route: 048
     Dates: start: 20050517
  5. AMOXICILLIN [Concomitant]
     Indication: SINUSITIS
     Dosage: 875 MG, BID
     Route: 048
     Dates: start: 20050501
  6. PROTONIX [Concomitant]
     Indication: PEPTIC ULCER
     Dosage: 40 MG, QD
     Route: 048
     Dates: start: 20050517
  7. EFFEXOR XR [Concomitant]
     Dosage: 75 MG, QD
     Route: 048
     Dates: start: 20050501
  8. YASMIN [Suspect]
     Dosage: UNK
     Route: 048
     Dates: start: 20040401, end: 20050701
  9. ALBUTEROL SULFATE AUTOHALER [Concomitant]
     Dosage: UNK
     Dates: start: 20010201, end: 20060401
  10. PREDNISONE [Concomitant]
     Indication: ARTHROPATHY
     Dosage: 20 MG, QD
     Route: 048
     Dates: start: 20050526

REACTIONS (5)
  - PSYCHIATRIC SYMPTOM [None]
  - CHOLELITHIASIS [None]
  - ABDOMINAL PAIN [None]
  - CHOLECYSTITIS CHRONIC [None]
  - EMOTIONAL DISORDER [None]
